FAERS Safety Report 9262380 (Version 1)
Quarter: 2013Q2

REPORT INFORMATION
  Report Type: Spontaneous
  Country: US (occurrence: US)
  Receive Date: 20130430
  Receipt Date: 20130430
  Transmission Date: 20140414
  Serious: No
  Sender: FDA-Public Use
  Company Number: US-BAYER-2013-052672

PATIENT
  Sex: Female

DRUGS (1)
  1. GIANVI [Suspect]
     Indication: CONTRACEPTION

REACTIONS (2)
  - Product packaging quantity issue [None]
  - Menorrhagia [None]
